FAERS Safety Report 4399193-4 (Version None)
Quarter: 2004Q2

REPORT INFORMATION
  Report Type: 
  Country: None (occurrence: None)
  Receive Date: 20040621
  Receipt Date: 20031224
  Transmission Date: 20050107
  Serious: Yes (Hospitalization, Other)
  Sender: FDA-Public Use
  Company Number: USA-2003-0008913

PATIENT
  Age: 44 Year
  Sex: Female
  Weight: 90.7 kg

DRUGS (20)
  1. OXYCONTIN [Suspect]
     Dosage: SEE TEXT, ORAL
     Route: 048
  2. ROXICODONE [Concomitant]
  3. OXYIR CAPSULES 5 MG [Concomitant]
  4. OXYFAST CONCENTRATE 20 MG/ML [Concomitant]
  5. MORPHINE SULFATE [Concomitant]
  6. XANAX [Concomitant]
  7. TORADOL [Concomitant]
  8. CELEBREX [Concomitant]
  9. ASPIRIN [Concomitant]
  10. PHENERGAN ^SPECIA^ [Concomitant]
  11. ZOLOFT [Concomitant]
  12. BACLOFEN [Concomitant]
  13. NEURONTIN [Concomitant]
  14. TENORMIN [Concomitant]
  15. NITRAZEPAM ^SLOVAKOFARMA^ [Concomitant]
  16. LOPRESSOR [Concomitant]
  17. TOPROL-XL [Concomitant]
  18. HEPARIN [Concomitant]
  19. ECOTRIN [Concomitant]
  20. ACTIVELLE [Concomitant]

REACTIONS (25)
  - ARTHRALGIA [None]
  - CHEST PAIN [None]
  - CONFUSIONAL STATE [None]
  - DEPRESSION [None]
  - DRUG ABUSER [None]
  - DRUG DEPENDENCE [None]
  - DRUG TOLERANCE [None]
  - DRUG WITHDRAWAL SYNDROME [None]
  - HEADACHE [None]
  - HOT FLUSH [None]
  - HYPOAESTHESIA [None]
  - INADEQUATE ANALGESIA [None]
  - INSOMNIA [None]
  - IRRITABILITY [None]
  - NAUSEA [None]
  - NERVOUSNESS [None]
  - NIGHT SWEATS [None]
  - OFF LABEL USE [None]
  - PAIN [None]
  - PAIN IN EXTREMITY [None]
  - PARAESTHESIA [None]
  - POLYMENORRHOEA [None]
  - ROAD TRAFFIC ACCIDENT [None]
  - TREMOR [None]
  - WEIGHT DECREASED [None]
